FAERS Safety Report 18695121 (Version 1)
Quarter: 2021Q1

REPORT INFORMATION
  Report Type: Report from Study
  Country: US (occurrence: US)
  Receive Date: 20210104
  Receipt Date: 20210104
  Transmission Date: 20210419
  Serious: Yes (Other)
  Sender: FDA-Public Use
  Company Number: US-ELI_LILLY_AND_COMPANY-US202012011719

PATIENT

DRUGS (3)
  1. COPANLISIB. [Concomitant]
     Active Substance: COPANLISIB
     Indication: HEPATOBILIARY CANCER
     Dosage: 60 MG, CYCLICAL
     Route: 065
     Dates: start: 2020
  2. CISPLATIN. [Concomitant]
     Active Substance: CISPLATIN
     Indication: HEPATOBILIARY CANCER
     Dosage: 25 MG/M2, CYCLICAL
     Route: 065
     Dates: start: 2020
  3. GEMCITABINE HYDROCHLORIDE. [Suspect]
     Active Substance: GEMCITABINE HYDROCHLORIDE
     Indication: HEPATOBILIARY CANCER
     Dosage: 1000 MG/M2, CYCLICAL
     Route: 065
     Dates: start: 2020

REACTIONS (1)
  - Toxicity to various agents [Unknown]

NARRATIVE: CASE EVENT DATE: 2020
